FAERS Safety Report 16681588 (Version 1)
Quarter: 2019Q3

REPORT INFORMATION
  Report Type: Spontaneous
  Country: GB (occurrence: GB)
  Receive Date: 20190807
  Receipt Date: 20190807
  Transmission Date: 20191004
  Serious: No
  Sender: FDA-Public Use
  Company Number: None

PATIENT
  Age: 34 Year
  Sex: Male
  Weight: 77 kg

DRUGS (2)
  1. BONJELA [Suspect]
     Active Substance: CETALKONIUM CHLORIDE\CHOLINE SALICYLATE\MENTHOL
     Indication: ANTIBIOTIC THERAPY
     Dates: start: 20190803, end: 20190804
  2. BONJELA [Suspect]
     Active Substance: CETALKONIUM CHLORIDE\CHOLINE SALICYLATE\MENTHOL
     Indication: LOCAL ANAESTHESIA
     Dates: start: 20190803, end: 20190804

REACTIONS (2)
  - Application site pain [None]
  - Application site burn [None]

NARRATIVE: CASE EVENT DATE: 20190804
